FAERS Safety Report 21553566 (Version 2)
Quarter: 2022Q4

REPORT INFORMATION
  Report Type: Spontaneous
  Country: US (occurrence: US)
  Receive Date: 20221104
  Receipt Date: 20221104
  Transmission Date: 20230113
  Serious: Yes (Other)
  Sender: FDA-Public Use
  Company Number: US-PROCTER_AND_GAMBLE-PH22007422

PATIENT
  Age: 78 Year
  Sex: Female
  Weight: 106 kg

DRUGS (2)
  1. MELATONIN [Suspect]
     Active Substance: MELATONIN
     Indication: Sleep disorder
     Dosage: 1 LIQCAP, BEDTIME (ONCE)
     Route: 048
     Dates: start: 20220612, end: 20220612
  2. ZZZQUIL NIGHTTIME SLEEP-AID [Suspect]
     Active Substance: DIPHENHYDRAMINE HYDROCHLORIDE
     Indication: Sleep disorder
     Dosage: 1 LIQCAP, 1 ONLY
     Route: 048
     Dates: start: 20220612, end: 20220612

REACTIONS (11)
  - Concussion [Recovered/Resolved]
  - Post concussion syndrome [Recovered/Resolved]
  - Dizziness [Recovered/Resolved]
  - Tissue injury [Recovered/Resolved]
  - Confusional state [Recovered/Resolved]
  - Dysphemia [Recovered/Resolved]
  - Dysarthria [Recovered/Resolved]
  - Headache [Recovered/Resolved]
  - Blood pressure increased [Recovered/Resolved]
  - Memory impairment [Recovered/Resolved]
  - Fall [Recovered/Resolved]

NARRATIVE: CASE EVENT DATE: 20220612
